FAERS Safety Report 5308936-4 (Version None)
Quarter: 2007Q1

REPORT INFORMATION
  Report Type: 
  Country: None (occurrence: None)
  Receive Date: 20070201
  Receipt Date: 20061228
  Transmission Date: 20070707
  Serious: No
  Sender: FDA-Public Use
  Company Number: 2006PV027501

PATIENT
  Age: 66 Year
  Sex: Female
  Weight: 113.3993 kg

DRUGS (3)
  1. BYETTA [Suspect]
     Indication: DIABETES MELLITUS INSULIN-DEPENDENT
     Dosage: 5 MCG; BID; SC
     Route: 058
     Dates: start: 20061214
  2. HUMALOG [Concomitant]
  3. LANTUS [Concomitant]

REACTIONS (5)
  - COUGH [None]
  - ERYTHEMA [None]
  - NASOPHARYNGITIS [None]
  - PHARYNGEAL ERYTHEMA [None]
  - POSTNASAL DRIP [None]
